FAERS Safety Report 10513357 (Version 1)
Quarter: 2014Q4

REPORT INFORMATION
  Report Type: Report from Study
  Country: US (occurrence: US)
  Receive Date: 20141013
  Receipt Date: 20141013
  Transmission Date: 20150528
  Serious: Yes (Other)
  Sender: FDA-Public Use
  Company Number: US-BAYER-2014-148061

PATIENT
  Age: 69 Year
  Sex: Female

DRUGS (1)
  1. STIVARGA [Suspect]
     Active Substance: REGORAFENIB
     Indication: COLORECTAL CANCER
     Dosage: 160 MG, QD
     Route: 048
     Dates: start: 20140926, end: 20140927

REACTIONS (4)
  - Abdominal pain [None]
  - Delirium [None]
  - Nausea [None]
  - Strangulated hernia [None]

NARRATIVE: CASE EVENT DATE: 20140927
